FAERS Safety Report 6869581-2 (Version None)
Quarter: 2010Q3

REPORT INFORMATION
  Report Type: 
  Country: None (occurrence: None)
  Receive Date: 20100722
  Receipt Date: 20080805
  Transmission Date: 20110219
  Serious: No
  Sender: FDA-Public Use
  Company Number: US-PFIZER INC-2008066546

PATIENT
  Sex: Female
  Weight: 92.7 kg

DRUGS (8)
  1. CHANTIX [Suspect]
     Indication: SMOKING CESSATION THERAPY
     Route: 048
     Dates: start: 20080707
  2. MICARDIS [Concomitant]
  3. HYDROCHLOROTHIAZIDE [Concomitant]
  4. LEVOTHYROXINE SODIUM [Concomitant]
  5. ACETYLSALICYLIC ACID [Concomitant]
  6. SIMVASTATIN [Concomitant]
  7. COREG [Concomitant]
     Dates: end: 20080701
  8. TOPROL-XL [Concomitant]
     Dates: start: 20080701

REACTIONS (4)
  - APTYALISM [None]
  - DRY MOUTH [None]
  - DRY THROAT [None]
  - OROPHARYNGEAL PAIN [None]
